FAERS Safety Report 5316806-0 (Version None)
Quarter: 2007Q2

REPORT INFORMATION
  Report Type: 
  Country: None (occurrence: None)
  Receive Date: 20070501
  Receipt Date: 20070501
  Transmission Date: 20071010
  Serious: No
  Sender: FDA-Public Use
  Company Number: None

PATIENT
  Sex: Female

DRUGS (2)
  1. OXYCODONE SA 40MG [Suspect]
     Indication: ARTHRALGIA
     Dosage: 40MG 1 BID ORAL
     Route: 048
     Dates: start: 20070129, end: 20070130
  2. OXYCODONE SA 40MG [Suspect]
     Indication: HYPERTROPHY
     Dosage: 40MG 1 BID ORAL
     Route: 048
     Dates: start: 20070129, end: 20070130

REACTIONS (2)
  - NAUSEA [None]
  - PRURITUS [None]
